FAERS Safety Report 4708018-6 (Version None)
Quarter: 2005Q3

REPORT INFORMATION
  Report Type: 
  Country: None (occurrence: None)
  Receive Date: 20050707
  Receipt Date: 20050613
  Transmission Date: 20060218
  Serious: Yes (Disabling)
  Sender: FDA-Public Use
  Company Number: PHFR2005MT02132

PATIENT
  Age: 48 Year
  Sex: Male
  Weight: 70 kg

DRUGS (2)
  1. LESCOL XL [Suspect]
     Indication: HYPERLIPIDAEMIA
     Dosage: 80 MG/DAY
     Route: 048
     Dates: start: 20050304, end: 20050415
  2. LOSARTAN [Concomitant]
     Dosage: 50 MG/DAY
     Dates: end: 20050415

REACTIONS (5)
  - COMPARTMENT SYNDROME [None]
  - MUSCLE ATROPHY [None]
  - MUSCLE INJURY [None]
  - MUSCLE NECROSIS [None]
  - SURGERY [None]
